FAERS Safety Report 13958846 (Version 1)
Quarter: 2017Q3

REPORT INFORMATION
  Report Type: Spontaneous
  Country: US (occurrence: US)
  Receive Date: 20170912
  Receipt Date: 20170912
  Transmission Date: 20171128
  Serious: No
  Sender: FDA-Public Use
  Company Number: US-JNJFOC-20160925546

PATIENT
  Age: 49 Year
  Sex: Male
  Weight: 68.04 kg

DRUGS (3)
  1. ZYRTEC [Suspect]
     Active Substance: CETIRIZINE HYDROCHLORIDE
     Indication: SEASONAL ALLERGY
     Dosage: 0.5 - 1 TABLET; 1-2 DAILY
     Route: 048
     Dates: start: 20160917, end: 20160918
  2. ZYRTEC [Suspect]
     Active Substance: CETIRIZINE HYDROCHLORIDE
     Indication: SEASONAL ALLERGY
     Dosage: HALF TABLET IN THE MORNING AND HALF TABLET IN THE EVENING
     Route: 048
     Dates: start: 20160919, end: 20160919
  3. ZYRTEC [Suspect]
     Active Substance: CETIRIZINE HYDROCHLORIDE
     Indication: SEASONAL ALLERGY
     Route: 048
     Dates: start: 20160920, end: 20160920

REACTIONS (1)
  - Drug ineffective [Unknown]
